FAERS Safety Report 16178145 (Version 1)
Quarter: 2019Q2

REPORT INFORMATION
  Report Type: Spontaneous
  Country: US (occurrence: US)
  Receive Date: 20190410
  Receipt Date: 20190410
  Transmission Date: 20190711
  Serious: No
  Sender: FDA-Public Use
  Company Number: US-AUROBINDO-AUR-APL-2019-003524

PATIENT

DRUGS (1)
  1. DEXTROMETHORPHAN HYDROBROMIDE AND GUAIFENESIN [Suspect]
     Active Substance: DEXTROMETHORPHAN HYDROBROMIDE\GUAIFENESIN
     Indication: INCREASED VISCOSITY OF UPPER RESPIRATORY SECRETION
     Dosage: 2 TABLETS PER DAY
     Route: 065
     Dates: start: 20190113

REACTIONS (2)
  - Ejaculation failure [Not Recovered/Not Resolved]
  - Ejaculation delayed [Not Recovered/Not Resolved]
